FAERS Safety Report 6655559-0 (Version None)
Quarter: 2010Q1

REPORT INFORMATION
  Report Type: 
  Country: None (occurrence: None)
  Receive Date: 20100329
  Receipt Date: 20100316
  Transmission Date: 20100710
  Serious: Yes (Other)
  Sender: FDA-Public Use
  Company Number: US-PFIZER INC-2010035112

PATIENT
  Sex: Female

DRUGS (1)
  1. CHANTIX [Suspect]

REACTIONS (4)
  - DYSGRAPHIA [None]
  - GAIT DISTURBANCE [None]
  - MOTOR DYSFUNCTION [None]
  - SPEECH DISORDER [None]
